FAERS Safety Report 14173055 (Version 1)
Quarter: 2017Q4

REPORT INFORMATION
  Report Type: Spontaneous
  Country: US (occurrence: None)
  Receive Date: 20171108
  Receipt Date: 20171108
  Transmission Date: 20180321
  Serious: No
  Sender: FDA-Public Use
  Company Number: None

PATIENT
  Age: 44 Year
  Sex: Female

DRUGS (1)
  1. KALYDECO [Suspect]
     Active Substance: IVACAFTOR
     Route: 048
     Dates: start: 20171014

REACTIONS (3)
  - Oropharyngeal pain [None]
  - Cough [None]
  - Nasal congestion [None]

NARRATIVE: CASE EVENT DATE: 20171026
